FAERS Safety Report 13244090 (Version 1)
Quarter: 2017Q1

REPORT INFORMATION
  Report Type: Spontaneous
  Country: US (occurrence: US)
  Receive Date: 20170216
  Receipt Date: 20170216
  Transmission Date: 20170428
  Serious: No
  Sender: FDA-Public Use
  Company Number: US-RELYPSA-RLY2017000201

PATIENT
  Sex: Female

DRUGS (13)
  1. VELTASSA [Suspect]
     Active Substance: PATIROMER
     Indication: HYPERKALAEMIA
     Dosage: 8.4 G, QD
     Route: 048
     Dates: start: 20160527
  2. FUROSEMIDE. [Concomitant]
     Active Substance: FUROSEMIDE
  3. PRAVASTATIN SODIUM. [Concomitant]
     Active Substance: PRAVASTATIN SODIUM
  4. BENEFIBER                          /00677201/ [Concomitant]
     Active Substance: ICODEXTRIN
  5. ALLOPURINOL. [Concomitant]
     Active Substance: ALLOPURINOL
  6. CHLORTHALIDONE. [Concomitant]
     Active Substance: CHLORTHALIDONE
  7. PARICALCITOL. [Concomitant]
     Active Substance: PARICALCITOL
  8. FERROUS SULFATE. [Concomitant]
     Active Substance: FERROUS SULFATE
  9. SODIUM BICARBONATE. [Concomitant]
     Active Substance: SODIUM BICARBONATE
  10. AMLODIPINE BESYLATE. [Concomitant]
     Active Substance: AMLODIPINE BESYLATE
  11. CHOLECALCIFEROL [Concomitant]
     Active Substance: CHOLECALCIFEROL
  12. ASPIRIN 81 [Concomitant]
     Active Substance: ASPIRIN
  13. CARVEDILOL. [Concomitant]
     Active Substance: CARVEDILOL

REACTIONS (1)
  - Drug administration error [Unknown]
